FAERS Safety Report 11404113 (Version 1)
Quarter: 2015Q3

REPORT INFORMATION
  Report Type: Spontaneous
  Country: US (occurrence: None)
  Receive Date: 20150820
  Receipt Date: 20150820
  Transmission Date: 20151125
  Serious: Yes (Other)
  Sender: FDA-Public Use
  Company Number: None

PATIENT
  Age: 69 Year
  Sex: Female
  Weight: 97.52 kg

DRUGS (6)
  1. SIMVASTATIN. [Concomitant]
     Active Substance: SIMVASTATIN
  2. OCUVITE [Concomitant]
     Active Substance: VITAMINS
  3. VITAMIN C [Concomitant]
     Active Substance: ASCORBIC ACID
  4. TRAVATAN [Suspect]
     Active Substance: TRAVOPROST
     Indication: OPEN ANGLE GLAUCOMA
     Dosage: 1 DROP AT NIGHT IN EACH EYE AT BEDTIME INTO THE EYE
  5. MULTIPLE VITAMINS [Concomitant]
     Active Substance: VITAMINS
  6. KRILL OIL [Concomitant]
     Active Substance: DIETARY SUPPLEMENT

REACTIONS (4)
  - Middle insomnia [None]
  - Eye pain [None]
  - Eye contusion [None]
  - Ocular hyperaemia [None]

NARRATIVE: CASE EVENT DATE: 20150817
